FAERS Safety Report 26145729 (Version 1)
Quarter: 2025Q4

REPORT INFORMATION
  Report Type: Report from Study
  Country: KR (occurrence: KR)
  Receive Date: 20251211
  Receipt Date: 20251211
  Transmission Date: 20260117
  Serious: Yes (Other)
  Sender: ALCON
  Company Number: KR-SANTEN KOREA-2025-KOR-007704

PATIENT
  Age: 7 Decade
  Sex: Male

DRUGS (4)
  1. RHOPRESSA [Suspect]
     Active Substance: NETARSUDIL MESYLATE
     Indication: Open angle glaucoma
     Dosage: RIGHT EYE/ONCE A DAY, 1 DROP/TIME
     Route: 047
     Dates: start: 20241126, end: 20250208
  2. ALPHAGAN P [Concomitant]
     Active Substance: BRIMONIDINE TARTRATE
     Indication: Glaucoma
     Dosage: 5 ML
     Route: 047
     Dates: start: 20230314
  3. COSOPT [Concomitant]
     Active Substance: DORZOLAMIDE HYDROCHLORIDE\TIMOLOL MALEATE
     Indication: Glaucoma
     Dosage: UNK
     Route: 047
     Dates: start: 20230314
  4. TRAVATAN [Concomitant]
     Active Substance: TRAVOPROST
     Indication: Glaucoma
     Dosage: UNK
     Route: 047
     Dates: start: 2022

REACTIONS (3)
  - Corneal opacity [Recovering/Resolving]
  - Conjunctival hyperaemia [Recovered/Resolved]
  - Eye irritation [Recovered/Resolved]

NARRATIVE: CASE EVENT DATE: 20250208
